FAERS Safety Report 22961934 (Version 4)
Quarter: 2023Q4

REPORT INFORMATION
  Report Type: Spontaneous
  Country: US (occurrence: US)
  Receive Date: 20230920
  Receipt Date: 20231225
  Transmission Date: 20240110
  Serious: Yes (Hospitalization)
  Sender: FDA-Public Use
  Company Number: US-SA-SAC20230918001029

PATIENT
  Age: 66 Year
  Sex: Female

DRUGS (1)
  1. DUPIXENT [Suspect]
     Active Substance: DUPILUMAB
     Indication: Dermatitis atopic
     Dosage: 300 MG, QOW
     Route: 058
     Dates: start: 20230815

REACTIONS (19)
  - Scratch [Unknown]
  - Peripheral vascular disorder [Unknown]
  - Staphylococcal skin infection [Unknown]
  - Eye disorder [Unknown]
  - Skin weeping [Unknown]
  - Foot deformity [Unknown]
  - Skin exfoliation [Unknown]
  - Pruritus [Unknown]
  - Dermatitis atopic [Unknown]
  - Peripheral swelling [Unknown]
  - Miliaria [Unknown]
  - Skin discolouration [Unknown]
  - Skin ulcer [Unknown]
  - Visual impairment [Unknown]
  - Abscess limb [Unknown]
  - Muscle rigidity [Unknown]
  - Vision blurred [Unknown]
  - Dry eye [Unknown]
  - Inappropriate schedule of product administration [Unknown]

NARRATIVE: CASE EVENT DATE: 20230101
